FAERS Safety Report 11422879 (Version 1)
Quarter: 2015Q3

REPORT INFORMATION
  Report Type: Spontaneous
  Country: US (occurrence: None)
  Receive Date: 20150826
  Receipt Date: 20150826
  Transmission Date: 20151125
  Serious: Yes (Hospitalization, Disabling, Other)
  Sender: FDA-Public Use
  Company Number: None

PATIENT
  Age: 46 Year
  Sex: Female
  Weight: 71.67 kg

DRUGS (1)
  1. ORACEA [Suspect]
     Active Substance: DOXYCYCLINE
     Indication: RASH
     Route: 048
     Dates: start: 20150810, end: 20150818

REACTIONS (10)
  - Anxiety [None]
  - Peripheral swelling [None]
  - Arthralgia [None]
  - Malaise [None]
  - Fatigue [None]
  - Chest pain [None]
  - Pain in extremity [None]
  - Nausea [None]
  - Paraesthesia [None]
  - Back pain [None]

NARRATIVE: CASE EVENT DATE: 20150818
